FAERS Safety Report 7363413-4 (Version None)
Quarter: 2011Q1

REPORT INFORMATION
  Report Type: 
  Country: None (occurrence: None)
  Receive Date: 20110321
  Receipt Date: 20110308
  Transmission Date: 20110831
  Serious: Yes (Other)
  Sender: FDA-Public Use
  Company Number: PHHY2011AU18810

PATIENT
  Sex: Female

DRUGS (1)
  1. ACLASTA [Suspect]
     Dosage: UNK
     Dates: start: 20110219

REACTIONS (13)
  - LETHARGY [None]
  - VOMITING [None]
  - HEADACHE [None]
  - GAIT DISTURBANCE [None]
  - SOMNOLENCE [None]
  - DIARRHOEA [None]
  - FAECAL INCONTINENCE [None]
  - URINARY INCONTINENCE [None]
  - MOVEMENT DISORDER [None]
  - PARAESTHESIA [None]
  - APHAGIA [None]
  - BALANCE DISORDER [None]
  - FATIGUE [None]
